FAERS Safety Report 6797583-3 (Version None)
Quarter: 2010Q2

REPORT INFORMATION
  Report Type: 
  Country: None (occurrence: None)
  Receive Date: 20100623
  Receipt Date: 20100610
  Transmission Date: 20101027
  Serious: Yes (Death, Hospitalization)
  Sender: FDA-Public Use
  Company Number: TRP_07034_2010

PATIENT
  Age: 54 Year
  Sex: Male

DRUGS (2)
  1. RIBAVIRIN [Suspect]
     Indication: HEPATITIS C
     Dosage: 800 MG, DAILY
  2. PEGINTERFERON ALFA-2A [Suspect]
     Indication: HEPATITIS C
     Dosage: 180 UG 1X/WEEK

REACTIONS (7)
  - DECREASED APPETITE [None]
  - ESCHERICHIA TEST POSITIVE [None]
  - HAEMOGLOBIN DECREASED [None]
  - MULTI-ORGAN FAILURE [None]
  - NEUTROPENIC COLITIS [None]
  - PLATELET COUNT DECREASED [None]
  - WEIGHT DECREASED [None]
